FAERS Safety Report 24861556 (Version 1)
Quarter: 2025Q1

REPORT INFORMATION
  Report Type: Spontaneous
  Country: CN (occurrence: CN)
  Receive Date: 20250120
  Receipt Date: 20250120
  Transmission Date: 20250409
  Serious: No
  Sender: ALKEM
  Company Number: CN-ALKEM LABORATORIES LIMITED-CN-ALKEM-2024-24384

PATIENT
  Sex: Male
  Weight: 3600 kg

DRUGS (14)
  1. NIFEDIPINE [Suspect]
     Active Substance: NIFEDIPINE
     Indication: Congenital hyperinsulinaemic hypoglycaemia
     Route: 065
  2. SIROLIMUS [Suspect]
     Active Substance: SIROLIMUS
     Indication: Congenital hyperinsulinaemic hypoglycaemia
     Dosage: 3.2 MILLIGRAM/SQ. METER, QD
     Route: 065
  3. SIROLIMUS [Suspect]
     Active Substance: SIROLIMUS
     Dosage: 0.5 MILLIGRAM/SQ. METER, QD
     Route: 065
  4. SIROLIMUS [Suspect]
     Active Substance: SIROLIMUS
     Route: 065
  5. DIAZOXIDE [Concomitant]
     Active Substance: DIAZOXIDE
     Indication: Congenital hyperinsulinaemic hypoglycaemia
     Dosage: 15 MILLIGRAM/KILOGRAM, QD (GRADUALLY INCREASED)
     Route: 065
  6. DEXTROSE [Concomitant]
     Active Substance: DEXTROSE MONOHYDRATE
     Indication: Congenital hyperinsulinaemic hypoglycaemia
     Route: 051
  7. DEXTROSE [Concomitant]
     Active Substance: DEXTROSE MONOHYDRATE
     Route: 042
  8. DEXTROSE [Concomitant]
     Active Substance: DEXTROSE MONOHYDRATE
     Route: 065
  9. DEXTROSE [Concomitant]
     Active Substance: DEXTROSE MONOHYDRATE
     Route: 065
  10. OCTREOTIDE [Concomitant]
     Active Substance: OCTREOTIDE
     Indication: Congenital hyperinsulinaemic hypoglycaemia
     Dosage: 30 MICROGRAM/KILOGRAM, QD (MAXIMUM DOSE)
     Route: 058
  11. OCTREOTIDE [Concomitant]
     Active Substance: OCTREOTIDE
     Dosage: 15 MICROGRAM/KILOGRAM, QD
     Route: 065
  12. OCTREOTIDE [Concomitant]
     Active Substance: OCTREOTIDE
     Dosage: 2 MICROGRAM/KILOGRAM, QD (LOW DOSE)
     Route: 065
  13. OCTREOTIDE [Concomitant]
     Active Substance: OCTREOTIDE
     Route: 058
  14. OCTREOTIDE [Concomitant]
     Active Substance: OCTREOTIDE
     Route: 058

REACTIONS (2)
  - Blood triglycerides increased [Unknown]
  - Drug ineffective [Unknown]
